FAERS Safety Report 24981162 (Version 2)
Quarter: 2025Q1

REPORT INFORMATION
  Report Type: Report from Study
  Country: US (occurrence: US)
  Receive Date: 20250218
  Receipt Date: 20250318
  Transmission Date: 20250409
  Serious: Yes (Hospitalization, Other)
  Sender: ACADIA PHARMACEUTICALS
  Company Number: US-ACADIA PHARMACEUTICALS INC.-ACA-2025-TRF-001230

PATIENT
  Age: 9 Year
  Sex: Female

DRUGS (27)
  1. DAYBUE [Suspect]
     Active Substance: TROFINETIDE
     Indication: Rett syndrome
     Dosage: 30 MILLILITER, BID
     Dates: start: 202304
  2. DAYBUE [Suspect]
     Active Substance: TROFINETIDE
     Dosage: 30 MILLILITER, BID
     Dates: start: 20240930
  3. TYLENOL [Concomitant]
     Active Substance: ACETAMINOPHEN
     Indication: Pyrexia
     Dosage: 320 MILLIGRAM, QID
     Dates: start: 20241112
  4. TYLENOL [Concomitant]
     Active Substance: ACETAMINOPHEN
     Indication: Pain
  5. ALBUTEROL SULFATE [Concomitant]
     Active Substance: ALBUTEROL SULFATE
     Indication: Wheezing
     Route: 065
     Dates: start: 20241016
  6. BIFIDOBACTERIUM ANIMALIS;LACTOBACILLUS ACIDOPHILUS;PROBIOTICS NOS [Concomitant]
     Route: 065
     Dates: start: 20220316
  7. CALCIUM CARBONATE [Concomitant]
     Active Substance: CALCIUM CARBONATE
     Dosage: 1250 MILLIGRAM, TID
     Route: 048
     Dates: start: 20250219
  8. CETIRIZINE [Concomitant]
     Active Substance: CETIRIZINE HYDROCHLORIDE
     Dosage: 10 MILLIGRAM, QD
     Dates: start: 20241016
  9. CLONAZEPAM [Concomitant]
     Active Substance: CLONAZEPAM
     Indication: Pyrexia
     Dosage: 0.25 MILLIGRAM, BID
     Route: 048
     Dates: start: 20240719
  10. CLONAZEPAM [Concomitant]
     Active Substance: CLONAZEPAM
     Indication: Vomiting
  11. CLONAZEPAM [Concomitant]
     Active Substance: CLONAZEPAM
     Indication: Seizure
  12. VALTOCO [Concomitant]
     Active Substance: DIAZEPAM
     Indication: Seizure
     Dates: start: 20220919
  13. VALTOCO [Concomitant]
     Active Substance: DIAZEPAM
     Indication: Generalised tonic-clonic seizure
  14. ERGOCALCIFEROL [Concomitant]
     Active Substance: ERGOCALCIFEROL
     Route: 048
     Dates: start: 20231221
  15. FLUTICASONE [Concomitant]
     Active Substance: FLUTICASONE
     Dosage: UNK UNK, 2 PUFFS BID, STRENGTH: 110 MOG/INH MDI)
     Dates: start: 20240709
  16. FLUTICASONE [Concomitant]
     Active Substance: FLUTICASONE
     Dosage: UNK, 2 SPRAY EACH BID, FLUTICASONE NASAL
     Dates: start: 20241111
  17. IBUPROFEN [Concomitant]
     Active Substance: IBUPROFEN
     Indication: Pain
     Dosage: 5 MILLILITER, QID, STRENGTH: 100 MG/5 ML, PRN: AS NEEDED FOR PAIN
  18. ATROVENT [Concomitant]
     Active Substance: IPRATROPIUM BROMIDE
     Dates: start: 20241016
  19. IPRATROPIUM [Concomitant]
     Active Substance: IPRATROPIUM
     Dates: start: 20241111
  20. LAMOTRIGINE [Concomitant]
     Active Substance: LAMOTRIGINE
     Dosage: 50 MILLIGRAM, BID, 50 MG ORAL TABLET, DISINTEGRATING
     Dates: start: 20240911
  21. LAMOTRIGINE [Concomitant]
     Active Substance: LAMOTRIGINE
     Dosage: 1 DOSAGE FORM, BID
     Route: 048
     Dates: start: 20240911
  22. KEPPRA [Concomitant]
     Active Substance: LEVETIRACETAM
     Dates: start: 20250225
  23. FLINTSTONES MULTIVITAMINS WITH IRON [Concomitant]
  24. OMEPRAZOLE [Concomitant]
     Active Substance: OMEPRAZOLE
     Dosage: 2.5 MILLILITER, QD, STRENGTH: 2 MG/ML
     Route: 048
     Dates: start: 20250226
  25. MIRALAX [Concomitant]
     Active Substance: POLYETHYLENE GLYCOL 3350
     Dates: start: 20220615
  26. SODIUM CHLORIDE [Concomitant]
     Active Substance: SODIUM CHLORIDE
     Dosage: 5 MILLILITER, BID,3% FOR NEBULIZATION
     Dates: start: 20250125
  27. TRIAMCINOLONE [Concomitant]
     Active Substance: TRIAMCINOLONE
     Dosage: 1 APPLICATION, BID
     Route: 061
     Dates: start: 20240911

REACTIONS (2)
  - Pneumonia [Recovered/Resolved]
  - Intentional dose omission [Recovered/Resolved]

NARRATIVE: CASE EVENT DATE: 20250122
